FAERS Safety Report 21535535 (Version 1)
Quarter: 2022Q4

REPORT INFORMATION
  Report Type: Report from Study
  Country: US (occurrence: US)
  Receive Date: 20221101
  Receipt Date: 20221101
  Transmission Date: 20230113
  Serious: No
  Sender: FDA-Public Use
  Company Number: US-ABBVIE-4148655

PATIENT
  Sex: Male

DRUGS (3)
  1. HUMIRA [Suspect]
     Active Substance: ADALIMUMAB
     Indication: Psoriatic arthropathy
     Dosage: FORM STRENGTH: 40 MILLIGRAM
     Route: 058
  2. Pfizer biotech covid-19 vaccine [Concomitant]
     Indication: COVID-19 immunisation
     Dosage: BOOSTER DOSE
     Route: 030
  3. MODERNA COVID-19 VACCINE [Concomitant]
     Active Substance: ELASOMERAN
     Indication: COVID-19 immunisation

REACTIONS (1)
  - Arthralgia [Not Recovered/Not Resolved]
